FAERS Safety Report 10217876 (Version 1)
Quarter: 2014Q2

REPORT INFORMATION
  Report Type: Spontaneous
  Country: HK (occurrence: HK)
  Receive Date: 20140605
  Receipt Date: 20140605
  Transmission Date: 20141212
  Serious: Yes (Death)
  Sender: FDA-Public Use
  Company Number: HK-AMGEN-HKGSP2014040505

PATIENT
  Sex: 0

DRUGS (2)
  1. SENSIPAR [Suspect]
     Indication: HYPERPARATHYROIDISM SECONDARY
     Dosage: 25 MG, QD
     Route: 048
  2. DIALYSATE [Concomitant]

REACTIONS (3)
  - Death [Fatal]
  - Drug intolerance [Unknown]
  - Hypocalcaemia [Unknown]
